FAERS Safety Report 12708950 (Version 1)
Quarter: 2016Q3

REPORT INFORMATION
  Report Type: Spontaneous
  Country: US (occurrence: US)
  Receive Date: 20160901
  Receipt Date: 20160901
  Transmission Date: 20161109
  Serious: No
  Sender: FDA-Public Use
  Company Number: US-JAZZ-2016-US-008363

PATIENT
  Sex: Female

DRUGS (17)
  1. TRETINOIN. [Concomitant]
     Active Substance: TRETINOIN
  2. LINZESS [Concomitant]
     Active Substance: LINACLOTIDE
  3. TRAZODONE [Concomitant]
     Active Substance: TRAZODONE HYDROCHLORIDE
  4. CAMRESE [Concomitant]
     Active Substance: ETHINYL ESTRADIOL\LEVONORGESTREL
  5. PROAIR HFA [Concomitant]
     Active Substance: ALBUTEROL SULFATE
  6. XYREM [Suspect]
     Active Substance: SODIUM OXYBATE
     Indication: NARCOLEPSY
     Dosage: 2.25 G, BID
     Route: 048
     Dates: start: 201603, end: 201603
  7. XYREM [Suspect]
     Active Substance: SODIUM OXYBATE
     Dosage: 4.5 G, BID
     Route: 048
     Dates: start: 201604
  8. DICYCLOMINE [Concomitant]
     Active Substance: DICYCLOMINE HYDROCHLORIDE
  9. LYRICA [Concomitant]
     Active Substance: PREGABALIN
  10. XYREM [Suspect]
     Active Substance: SODIUM OXYBATE
     Dosage: DOSE ADJUSTMENTS
     Route: 048
  11. FLOVENT HFA [Concomitant]
     Active Substance: FLUTICASONE PROPIONATE
  12. LEXAPRO [Concomitant]
     Active Substance: ESCITALOPRAM OXALATE
  13. VYVANSE [Concomitant]
     Active Substance: LISDEXAMFETAMINE DIMESYLATE
  14. XANAX [Concomitant]
     Active Substance: ALPRAZOLAM
  15. REGLAN [Concomitant]
     Active Substance: METOCLOPRAMIDE HYDROCHLORIDE
  16. NEXIUM [Concomitant]
     Active Substance: ESOMEPRAZOLE MAGNESIUM
  17. SILVADENE [Concomitant]
     Active Substance: SILVER SULFADIAZINE

REACTIONS (1)
  - Somnolence [Unknown]
